FAERS Safety Report 16080108 (Version 4)
Quarter: 2019Q2

REPORT INFORMATION
  Report Type: Spontaneous
  Country: JP (occurrence: JP)
  Receive Date: 20190315
  Receipt Date: 20190607
  Transmission Date: 20190711
  Serious: Yes (Hospitalization, Other)
  Sender: FDA-Public Use
  Company Number: PHHY2019JP052425

PATIENT
  Age: 75 Year
  Sex: Male
  Weight: 51 kg

DRUGS (1)
  1. PREDNISOLONE. [Suspect]
     Active Substance: PREDNISOLONE
     Indication: NEPHROPATHY
     Dosage: 0.6 MG/KG, QD ((30 MG/DAY)
     Route: 065

REACTIONS (4)
  - Decreased appetite [Unknown]
  - Renal failure [Not Recovered/Not Resolved]
  - Substance-induced psychotic disorder [Not Recovered/Not Resolved]
  - Malnutrition [Unknown]
